FAERS Safety Report 24593975 (Version 1)
Quarter: 2024Q4

REPORT INFORMATION
  Report Type: Spontaneous
  Country: US (occurrence: US)
  Receive Date: 20241108
  Receipt Date: 20241108
  Transmission Date: 20250115
  Serious: No
  Sender: PFIZER
  Company Number: US-PFIZER INC-PV202400143834

PATIENT
  Age: 49 Year
  Sex: Female

DRUGS (1)
  1. NURTEC ODT [Suspect]
     Active Substance: RIMEGEPANT SULFATE
     Dosage: 1 DF, ALTERNATE DAY (PLACE ONE TABLET ON OR UNDER THE TONGUE EVERY OTHER DAY)
     Route: 048
     Dates: start: 2023

REACTIONS (3)
  - Drug ineffective [Unknown]
  - Vomiting [Unknown]
  - Eye haemorrhage [Unknown]
